FAERS Safety Report 7498853-6 (Version None)
Quarter: 2011Q2

REPORT INFORMATION
  Report Type: 
  Country: None (occurrence: None)
  Receive Date: 20110524
  Receipt Date: 20110512
  Transmission Date: 20111010
  Serious: Yes (Life-Threatening, Hospitalization)
  Sender: FDA-Public Use
  Company Number: FR-JNJFOC-20110506101

PATIENT
  Age: 65 Year
  Sex: Female

DRUGS (3)
  1. VALPROMIDE [Suspect]
     Indication: BIPOLAR DISORDER
     Route: 065
  2. TROPATEPINE [Suspect]
     Indication: BIPOLAR DISORDER
     Route: 065
  3. RISPERDAL [Suspect]
     Indication: BIPOLAR DISORDER
     Route: 065

REACTIONS (4)
  - COMA [None]
  - HYPOTENSION [None]
  - INTENTIONAL OVERDOSE [None]
  - CONFUSIONAL STATE [None]
